FAERS Safety Report 7726745-3 (Version None)
Quarter: 2011Q3

REPORT INFORMATION
  Report Type: 
  Country: None (occurrence: None)
  Receive Date: 20110902
  Receipt Date: 20110819
  Transmission Date: 20111222
  Serious: Yes (Hospitalization)
  Sender: FDA-Public Use
  Company Number: US-GLAXOSMITHKLINE-A0747316A

PATIENT
  Age: 66 Year
  Sex: Female
  Weight: 77.3 kg

DRUGS (9)
  1. LANTUS [Concomitant]
  2. ACTOS [Concomitant]
     Dates: end: 20060112
  3. NIFEDIPINE [Concomitant]
  4. METFORMIN HCL [Concomitant]
  5. AVANDIA [Suspect]
     Indication: TYPE 2 DIABETES MELLITUS
     Dosage: 4MG PER DAY
     Route: 048
     Dates: start: 20050601, end: 20070101
  6. AVANDARYL [Suspect]
     Indication: TYPE 2 DIABETES MELLITUS
     Route: 048
     Dates: start: 20060112, end: 20070101
  7. GLARGINE [Concomitant]
  8. ATENOLOL [Concomitant]
  9. CILOSTAZOL [Concomitant]

REACTIONS (4)
  - CARDIAC DISORDER [None]
  - CEREBROVASCULAR ACCIDENT [None]
  - MYOCARDIAL INFARCTION [None]
  - CARDIAC FAILURE CONGESTIVE [None]
